FAERS Safety Report 22764852 (Version 57)
Quarter: 2025Q3

REPORT INFORMATION
  Report Type: Report from Study
  Country: CA (occurrence: CA)
  Receive Date: 20230731
  Receipt Date: 20250930
  Transmission Date: 20251021
  Serious: Yes (Other)
  Sender: TAKEDA
  Company Number: CA-TAKEDA-2023TUS027915

PATIENT
  Age: 5 Year
  Sex: Male
  Weight: 23 kg

DRUGS (47)
  1. IDURSULFASE [Suspect]
     Active Substance: IDURSULFASE
     Indication: Mucopolysaccharidosis II
     Dosage: 2 DOSAGE FORM, 1/WEEK
     Dates: start: 20230105
  2. IDURSULFASE [Suspect]
     Active Substance: IDURSULFASE
     Dosage: 12 MILLIGRAM, 1/WEEK
  3. IDURSULFASE [Suspect]
     Active Substance: IDURSULFASE
     Dosage: 12 MILLIGRAM, 1/WEEK
  4. IDURSULFASE [Suspect]
     Active Substance: IDURSULFASE
     Dosage: UNK UNK, 1/WEEK
  5. IDURSULFASE [Suspect]
     Active Substance: IDURSULFASE
     Dosage: UNK UNK, 1/WEEK
  6. IDURSULFASE [Suspect]
     Active Substance: IDURSULFASE
     Dosage: UNK UNK, 1/WEEK
  7. IDURSULFASE [Suspect]
     Active Substance: IDURSULFASE
     Dosage: UNK UNK, 1/WEEK
  8. IDURSULFASE [Suspect]
     Active Substance: IDURSULFASE
     Dosage: 12 MILLIGRAM, 1/WEEK
  9. IDURSULFASE [Suspect]
     Active Substance: IDURSULFASE
     Dosage: UNK UNK, 1/WEEK
  10. IDURSULFASE [Suspect]
     Active Substance: IDURSULFASE
     Dosage: 12 MILLIGRAM, 1/WEEK
  11. IDURSULFASE [Suspect]
     Active Substance: IDURSULFASE
     Dosage: UNK UNK, 1/WEEK
  12. IDURSULFASE [Suspect]
     Active Substance: IDURSULFASE
     Dosage: 11.6 MILLIGRAM, 1/WEEK
  13. IDURSULFASE [Suspect]
     Active Substance: IDURSULFASE
     Dosage: 11.6 MILLIGRAM, 1/WEEK
  14. IDURSULFASE [Suspect]
     Active Substance: IDURSULFASE
     Dosage: 11.6 MILLIGRAM, 1/WEEK
  15. IDURSULFASE [Suspect]
     Active Substance: IDURSULFASE
     Dosage: 11.6 MILLIGRAM, 1/WEEK
  16. IDURSULFASE [Suspect]
     Active Substance: IDURSULFASE
     Dosage: 11.6 MILLIGRAM, 1/WEEK
  17. IDURSULFASE [Suspect]
     Active Substance: IDURSULFASE
     Dosage: UNK UNK, 1/WEEK
  18. IDURSULFASE [Suspect]
     Active Substance: IDURSULFASE
     Dosage: UNK UNK, 1/WEEK
  19. IDURSULFASE [Suspect]
     Active Substance: IDURSULFASE
     Dosage: 11.3 MILLIGRAM, 1/WEEK
  20. IDURSULFASE [Suspect]
     Active Substance: IDURSULFASE
     Dosage: 11.6 MILLIGRAM, 1/WEEK
  21. IDURSULFASE [Suspect]
     Active Substance: IDURSULFASE
     Dosage: 10.5 MILLIGRAM, 1/WEEK
  22. IDURSULFASE [Suspect]
     Active Substance: IDURSULFASE
     Dosage: 10.5 MILLIGRAM, 1/WEEK
  23. IDURSULFASE [Suspect]
     Active Substance: IDURSULFASE
     Dosage: 10.5 MILLIGRAM, 1/WEEK
  24. IDURSULFASE [Suspect]
     Active Substance: IDURSULFASE
     Dosage: 10.5 MILLIGRAM, 1/WEEK
  25. IDURSULFASE [Suspect]
     Active Substance: IDURSULFASE
     Dosage: UNK UNK, 1/WEEK
  26. IDURSULFASE [Suspect]
     Active Substance: IDURSULFASE
     Dosage: 10.5 MILLIGRAM, 1/WEEK
  27. IDURSULFASE [Suspect]
     Active Substance: IDURSULFASE
     Dosage: 10.5 MILLIGRAM, 1/WEEK
  28. IDURSULFASE [Suspect]
     Active Substance: IDURSULFASE
     Dosage: 10.5 MILLIGRAM, 1/WEEK
  29. IDURSULFASE [Suspect]
     Active Substance: IDURSULFASE
     Dosage: 10.5 MILLIGRAM, 1/WEEK
  30. IDURSULFASE [Suspect]
     Active Substance: IDURSULFASE
     Dosage: 10.5 MILLIGRAM, 1/WEEK
  31. IDURSULFASE [Suspect]
     Active Substance: IDURSULFASE
     Dosage: UNK UNK, 1/WEEK
  32. IDURSULFASE [Suspect]
     Active Substance: IDURSULFASE
     Dosage: 10.5 MILLIGRAM, 1/WEEK
  33. IDURSULFASE [Suspect]
     Active Substance: IDURSULFASE
     Dosage: 12.5 MILLIGRAM, 1/WEEK
  34. IDURSULFASE [Suspect]
     Active Substance: IDURSULFASE
     Dosage: 12.5 MILLIGRAM, 1/WEEK
  35. IDURSULFASE [Suspect]
     Active Substance: IDURSULFASE
     Dosage: 12.5 MILLIGRAM, 1/WEEK
  36. IDURSULFASE [Suspect]
     Active Substance: IDURSULFASE
     Dosage: 12.5 MILLIGRAM, 1/WEEK
  37. IDURSULFASE [Suspect]
     Active Substance: IDURSULFASE
     Dosage: 12.5 MILLIGRAM, 1/WEEK
  38. IDURSULFASE [Suspect]
     Active Substance: IDURSULFASE
     Dosage: 25.5 MILLIGRAM, 1/WEEK
  39. IDURSULFASE [Suspect]
     Active Substance: IDURSULFASE
     Dosage: 25.5 MILLIGRAM, 1/WEEK
  40. MONTELUKAST [Concomitant]
     Active Substance: MONTELUKAST
     Dosage: UNK, QD
  41. MONTELUKAST [Concomitant]
     Active Substance: MONTELUKAST
     Dosage: 4 MILLIGRAM, QD
  42. FLOVENT [Concomitant]
     Active Substance: FLUTICASONE PROPIONATE
     Dosage: 50 MICROGRAM, BID
  43. MOMETASONE [Concomitant]
     Active Substance: MOMETASONE
     Dosage: UNK UNK, QD
  44. Reactine [Concomitant]
  45. TACROLIMUS [Concomitant]
     Active Substance: TACROLIMUS
  46. VENTOLIN [Concomitant]
     Active Substance: ALBUTEROL SULFATE
  47. SIROLIMUS [Concomitant]
     Active Substance: SIROLIMUS

REACTIONS (48)
  - Hyperhidrosis [Recovered/Resolved]
  - Rash macular [Recovered/Resolved]
  - Blood pressure increased [Recovered/Resolved]
  - Heart rate increased [Recovered/Resolved]
  - Respiratory rate increased [Recovered/Resolved]
  - Body temperature increased [Recovered/Resolved]
  - Chills [Recovered/Resolved]
  - Tremor [Recovered/Resolved]
  - Abdominal pain [Recovering/Resolving]
  - Lower respiratory tract infection [Unknown]
  - Atypical pneumonia [Recovered/Resolved]
  - Blood pressure decreased [Unknown]
  - Respiratory rate decreased [Unknown]
  - Body temperature abnormal [Unknown]
  - Nasopharyngitis [Not Recovered/Not Resolved]
  - Constipation [Recovering/Resolving]
  - Abdominal tenderness [Unknown]
  - Weight decreased [Unknown]
  - Weight increased [Unknown]
  - Nasal congestion [Recovering/Resolving]
  - Viral infection [Recovering/Resolving]
  - Procedural pain [Unknown]
  - Feeling cold [Unknown]
  - Ear pain [Recovered/Resolved]
  - Pain in extremity [Unknown]
  - Blood pressure abnormal [Unknown]
  - Fall [Unknown]
  - Poor venous access [Unknown]
  - Infusion site discomfort [Unknown]
  - Pallor [Unknown]
  - Respiration abnormal [Unknown]
  - Gastroenteritis viral [Recovered/Resolved]
  - Heart rate abnormal [Unknown]
  - Wrong device used [Unknown]
  - Rhinorrhoea [Unknown]
  - Illness [Unknown]
  - Ear infection [Recovered/Resolved]
  - Lacrimation increased [Unknown]
  - Vomiting [Not Recovered/Not Resolved]
  - Diarrhoea [Not Recovered/Not Resolved]
  - Nasal discharge discolouration [Recovering/Resolving]
  - Abdominal pain upper [Recovered/Resolved]
  - Cough [Not Recovered/Not Resolved]
  - Pyrexia [Recovered/Resolved]
  - Product availability issue [Recovered/Resolved]
  - Device use issue [Unknown]
  - Inappropriate schedule of product administration [Unknown]
  - Wrist fracture [Unknown]

NARRATIVE: CASE EVENT DATE: 20230725
